FAERS Safety Report 6716370-5 (Version None)
Quarter: 2010Q2

REPORT INFORMATION
  Report Type: 
  Country: None (occurrence: None)
  Receive Date: 20100507
  Receipt Date: 20100503
  Transmission Date: 20101027
  Serious: Yes (Hospitalization)
  Sender: FDA-Public Use
  Company Number: DK-PERRIGO-10DK009301

PATIENT
  Age: 39 Year
  Sex: Female

DRUGS (4)
  1. IBUPROFEN 200 MG 604 [Suspect]
     Indication: ARTHRALGIA
     Dosage: UNK, SINGLE
     Route: 048
     Dates: start: 19940401, end: 19940401
  2. IBUPROFEN 200 MG 604 [Suspect]
     Indication: HAEMORRHOIDS
     Dosage: UNK, SINGLE
     Route: 048
     Dates: start: 20041101, end: 20041101
  3. IBUPROFEN 200 MG 604 [Suspect]
     Indication: PROCEDURAL PAIN
     Dosage: UNK, SINGLE
     Route: 048
     Dates: start: 20050501, end: 20050501
  4. IBUPROFEN 200 MG 604 [Suspect]
     Dosage: UNK, SINGLE
     Route: 048
     Dates: start: 20061001, end: 20061001

REACTIONS (8)
  - CONVULSION [None]
  - DEPRESSED LEVEL OF CONSCIOUSNESS [None]
  - HEADACHE [None]
  - LUMBAR PUNCTURE ABNORMAL [None]
  - MENINGITIS ASEPTIC [None]
  - PRESYNCOPE [None]
  - PYREXIA [None]
  - VISUAL IMPAIRMENT [None]
